FAERS Safety Report 17468871 (Version 1)
Quarter: 2020Q1

REPORT INFORMATION
  Report Type: Spontaneous
  Country: US (occurrence: US)
  Receive Date: 20200227
  Receipt Date: 20200227
  Transmission Date: 20200409
  Serious: No
  Sender: FDA-Public Use
  Company Number: None

PATIENT
  Age: 54 Year
  Sex: Female

DRUGS (8)
  1. PROCHLORPER 10MG TAB [Concomitant]
     Dates: start: 20200128
  2. KISQALI [Suspect]
     Active Substance: RIBOCICLIB
     Indication: NEOPLASM MALIGNANT
     Route: 048
     Dates: start: 20200130
  3. METOPROL SUC 25MG TAB ER [Concomitant]
     Dates: start: 20200128
  4. VITAMIN D3 CAP 2000 UNIT [Concomitant]
     Dates: start: 20200128
  5. JARDIANCE 25MG TAB [Concomitant]
     Dates: start: 20200128
  6. FASLODEX INJ 250/5ML [Concomitant]
     Dates: start: 20200128
  7. MELATONIN 10MG TAB [Concomitant]
     Dates: start: 20200128
  8. SYNTHROID 75MCG TAB [Concomitant]
     Dates: start: 20200128

REACTIONS (2)
  - Therapy cessation [None]
  - Electrocardiogram QT prolonged [None]
